FAERS Safety Report 5590079-6 (Version None)
Quarter: 2008Q1

REPORT INFORMATION
  Report Type: 
  Country: None (occurrence: None)
  Receive Date: 20080114
  Receipt Date: 20070214
  Transmission Date: 20080703
  Serious: No
  Sender: FDA-Public Use
  Company Number: US-ABBOTT-07P-163-0359607-00

PATIENT
  Age: 5 Year
  Sex: Male

DRUGS (1)
  1. OMNICEF [Suspect]
     Indication: SINUSITIS
     Route: 048

REACTIONS (2)
  - PHARYNGITIS [None]
  - TONSILLITIS [None]
